FAERS Safety Report 6233751-7 (Version None)
Quarter: 2009Q2

REPORT INFORMATION
  Report Type: 
  Country: None (occurrence: None)
  Receive Date: 20090616
  Receipt Date: 20090616
  Transmission Date: 20091009
  Serious: Yes (Other)
  Sender: FDA-Public Use
  Company Number: None

PATIENT
  Age: 73 Year
  Sex: Female
  Weight: 84.8226 kg

DRUGS (1)
  1. WARFARIN SODIUM [Suspect]
     Indication: EXTRASYSTOLES
     Dosage: 1 TABLET EVERY MORNING PO
     Route: 048
     Dates: start: 20080901, end: 20090310

REACTIONS (5)
  - ERYTHEMA [None]
  - RASH PRURITIC [None]
  - REACTION TO DRUG EXCIPIENTS [None]
  - SKIN EXFOLIATION [None]
  - SWELLING [None]
